FAERS Safety Report 7598215-7 (Version None)
Quarter: 2011Q3

REPORT INFORMATION
  Report Type: 
  Country: None (occurrence: None)
  Receive Date: 20110708
  Receipt Date: 20110617
  Transmission Date: 20111222
  Serious: No
  Sender: FDA-Public Use
  Company Number: US-B.I. PHARMACEUTICALS,INC./RIDGEFIELD-2011-BP-16037BP

PATIENT
  Sex: Female

DRUGS (15)
  1. PRADAXA [Suspect]
     Indication: ATRIAL FIBRILLATION
     Dosage: 300 MG
     Route: 048
     Dates: start: 20110401, end: 20110523
  2. METOPROLOL TARTRATE [Concomitant]
     Indication: BLOOD PRESSURE
     Dosage: 150 MG
  3. FISH OIL [Concomitant]
     Indication: BLOOD CHOLESTEROL INCREASED
  4. FUROSEMIDE [Concomitant]
     Indication: CARDIAC FAILURE CONGESTIVE
     Dosage: 20 MG
  5. LOSARTAN POTASSIUM [Concomitant]
     Indication: PROPHYLAXIS
     Dosage: 25 MG
  6. DIGOXIN [Concomitant]
     Indication: CARDIAC FAILURE CONGESTIVE
     Dosage: 125 MG
  7. LIPITOR [Concomitant]
     Indication: BLOOD CHOLESTEROL INCREASED
     Dosage: 10 MG
  8. GLUCOSAMINE [Concomitant]
     Indication: RHEUMATOID ARTHRITIS
  9. TRICOR [Concomitant]
     Indication: BLOOD CHOLESTEROL INCREASED
     Dosage: 145 MG
  10. REMACAID [Concomitant]
     Indication: RHEUMATOID ARTHRITIS
  11. FOLIC ACID [Concomitant]
     Indication: PROPHYLAXIS
  12. AVENDIA [Concomitant]
     Indication: GLUCOSE TOLERANCE IMPAIRED
     Dosage: 4 MG
  13. VERPAMIL HCL [Concomitant]
     Indication: BLOOD PRESSURE
     Dosage: 360 MG
  14. METHOTREXATE [Concomitant]
     Indication: RHEUMATOID ARTHRITIS
  15. CALCITRATE [Concomitant]
     Indication: PROPHYLAXIS

REACTIONS (2)
  - DYSPNOEA [None]
  - URTICARIA [None]
